FAERS Safety Report 6905194-1 (Version None)
Quarter: 2010Q3

REPORT INFORMATION
  Report Type: 
  Country: None (occurrence: None)
  Receive Date: 20100708
  Receipt Date: 20100118
  Transmission Date: 20110219
  Serious: Yes (Other)
  Sender: FDA-Public Use
  Company Number: 2007061233

PATIENT
  Age: 78 Year
  Sex: Male
  Weight: 49 kg

DRUGS (18)
  1. CHANTIX [Suspect]
     Indication: SMOKING CESSATION THERAPY
     Dosage: ORAL : 1 MG, 2X/DAY, ORAL : 0.5 MG, 1X/DAY, ORAL : 1 MG, 1X/DAY, ORAL
     Route: 048
     Dates: start: 20090423, end: 20090101
  2. CHANTIX [Suspect]
     Indication: SMOKING CESSATION THERAPY
     Dosage: ORAL : 1 MG, 2X/DAY, ORAL : 0.5 MG, 1X/DAY, ORAL : 1 MG, 1X/DAY, ORAL
     Route: 048
     Dates: start: 20090501, end: 20090101
  3. CHANTIX [Suspect]
     Indication: SMOKING CESSATION THERAPY
     Dosage: ORAL : 1 MG, 2X/DAY, ORAL : 0.5 MG, 1X/DAY, ORAL : 1 MG, 1X/DAY, ORAL
     Route: 048
     Dates: start: 20090407
  4. HYDROCHLOROTHIAZIDE [Concomitant]
  5. ALLEGRA [Concomitant]
  6. LOVASTATIN [Concomitant]
  7. ALEVE [Concomitant]
  8. OXYGEN (OXYGEN) [Concomitant]
  9. TAMSULOSIN HCL [Concomitant]
  10. LORATADINE [Concomitant]
  11. ASPIRIN [Concomitant]
  12. SIMVASTATIN [Concomitant]
  13. COMBIVENT [Concomitant]
  14. ADVAIR DISKUS 100/50 [Concomitant]
  15. ARFORMOTEROL INHALED (ARFORMOTEROL) [Concomitant]
  16. BUDESONIDE [Concomitant]
  17. FEXOFENADINE HCL [Concomitant]
  18. ALBUTEROL [Concomitant]

REACTIONS (13)
  - ABDOMINAL DISCOMFORT [None]
  - ABNORMAL DREAMS [None]
  - ANXIETY [None]
  - CONSTIPATION [None]
  - DEPRESSION [None]
  - DRUG INEFFECTIVE [None]
  - DYSPNOEA [None]
  - EMOTIONAL DISTRESS [None]
  - INTESTINAL OBSTRUCTION [None]
  - NIGHTMARE [None]
  - STRESS [None]
  - VISUAL IMPAIRMENT [None]
  - WEIGHT INCREASED [None]
